FAERS Safety Report 23470039 (Version 1)
Quarter: 2024Q1

REPORT INFORMATION
  Report Type: Spontaneous
  Country: PL (occurrence: PL)
  Receive Date: 20240202
  Receipt Date: 20240202
  Transmission Date: 20240410
  Serious: Yes (Other)
  Sender: FDA-Public Use
  Company Number: None

PATIENT
  Age: 33 Year
  Sex: Female
  Weight: 74 kg

DRUGS (6)
  1. IMRALDI [Suspect]
     Active Substance: ADALIMUMAB
     Indication: Psoriatic arthropathy
     Route: 058
     Dates: start: 20190604, end: 20190702
  2. FOLIC ACID [Concomitant]
     Active Substance: FOLIC ACID
     Indication: Psoriatic arthropathy
     Dosage: THERAPY ONGOING
     Route: 048
     Dates: start: 2007
  3. METHOTREXATE [Concomitant]
     Active Substance: METHOTREXATE
     Indication: Psoriatic arthropathy
     Dosage: THERAPY ONGOING
     Route: 048
     Dates: start: 2007
  4. EBASTINE [Concomitant]
     Active Substance: EBASTINE
     Indication: Hypersensitivity
     Dosage: THERAPY ONGOING
     Route: 048
     Dates: start: 2017
  5. METHYLPREDNISOLONE [Concomitant]
     Active Substance: METHYLPREDNISOLONE
     Indication: Psoriatic arthropathy
     Dosage: THERAPY ONGOING
     Route: 048
     Dates: start: 2007
  6. PARLODEL [Concomitant]
     Active Substance: BROMOCRIPTINE MESYLATE
     Indication: Pituitary tumour benign
     Dosage: UNKNOWN, THERAPY ONGOING; DOSAGE: 1-1/2-1-1/2
     Route: 065
     Dates: start: 2017

REACTIONS (5)
  - Crohn^s disease [Recovering/Resolving]
  - Faecal calprotectin increased [Recovering/Resolving]
  - Diarrhoea [Recovering/Resolving]
  - Haematochezia [Recovering/Resolving]
  - Drug ineffective [Recovering/Resolving]
